FAERS Safety Report 9822322 (Version 1)
Quarter: 2014Q1

REPORT INFORMATION
  Report Type: Spontaneous
  Country: CH (occurrence: CH)
  Receive Date: 20140116
  Receipt Date: 20140116
  Transmission Date: 20141002
  Serious: Yes (Other)
  Sender: FDA-Public Use
  Company Number: PHHY2014CH004873

PATIENT
  Age: 27 Year
  Sex: Female

DRUGS (11)
  1. SANDIMMUN [Suspect]
     Dosage: 100 MG, BID
     Dates: start: 200712, end: 200805
  2. SANDIMMUN [Interacting]
     Dosage: 100 MG, BID
  3. TACROLIMUS [Interacting]
     Indication: SLEEP DISORDER
     Dates: start: 200805, end: 200809
  4. HUMIRA [Concomitant]
     Dates: start: 200801, end: 200805
  5. ORENCIA [Concomitant]
     Dates: start: 200810, end: 201006
  6. ACTEMRA [Concomitant]
     Dates: start: 201006, end: 201009
  7. PREDNISONE [Concomitant]
     Dosage: 7.5 MG, QD
  8. PANTOZOL [Concomitant]
     Dosage: 40 MG, BID
  9. ASPIRIN CARDIO [Concomitant]
     Dosage: 100 MG, QD
  10. CALCIMAGON D3 FORTE [Concomitant]
     Dosage: 1 DF, QD
  11. FERRUM HAUSMANN [Concomitant]
     Dosage: 1 DF, QD

REACTIONS (3)
  - Barrett^s oesophagus [Unknown]
  - Gastrooesophageal reflux disease [Unknown]
  - Papilloma viral infection [Unknown]
